FAERS Safety Report 6029732-9 (Version None)
Quarter: 2009Q1

REPORT INFORMATION
  Report Type: 
  Country: None (occurrence: None)
  Receive Date: 20090107
  Receipt Date: 20081224
  Transmission Date: 20090719
  Serious: Yes (Other)
  Sender: FDA-Public Use
  Company Number: US-AVENTIS-200512128US

PATIENT
  Sex: Female

DRUGS (6)
  1. KETEK [Suspect]
     Indication: SINUSITIS
     Dates: start: 20050217
  2. KETEK [Suspect]
     Dates: start: 20050303
  3. MUCINEX [Concomitant]
     Dosage: DOSE: UNKNOWN
  4. IBUPROFEN TABLETS [Concomitant]
     Dosage: DOSE: UNKNOWN
  5. SUDAFED 12 HOUR [Concomitant]
     Dosage: DOSE: UNKNOWN
  6. ROBITUSSIN [Concomitant]
     Dosage: DOSE: UNKNOWN

REACTIONS (17)
  - ABDOMINAL PAIN [None]
  - ACUTE HEPATIC FAILURE [None]
  - ALANINE AMINOTRANSFERASE INCREASED [None]
  - ASCITES [None]
  - ASPARTATE AMINOTRANSFERASE INCREASED [None]
  - ASTHENIA [None]
  - BLOOD BILIRUBIN INCREASED [None]
  - BLOOD PRESSURE DECREASED [None]
  - CHILLS [None]
  - FATIGUE [None]
  - HEPATITIS ACUTE [None]
  - HEPATOMEGALY [None]
  - NAUSEA [None]
  - PALLOR [None]
  - PLATELET COUNT DECREASED [None]
  - PLEURAL EFFUSION [None]
  - PYREXIA [None]
